FAERS Safety Report 14566023 (Version 1)
Quarter: 2018Q1

REPORT INFORMATION
  Report Type: Spontaneous
  Country: US (occurrence: US)
  Receive Date: 20180223
  Receipt Date: 20180223
  Transmission Date: 20180509
  Serious: No
  Sender: FDA-Public Use
  Company Number: US-BAYER-2018-034109

PATIENT
  Age: 94 Year
  Sex: Male
  Weight: 80 kg

DRUGS (7)
  1. TAMSULOSIN [Concomitant]
     Active Substance: TAMSULOSIN
  2. FINASTERIDE. [Concomitant]
     Active Substance: FINASTERIDE
  3. MIRALAX [Suspect]
     Active Substance: POLYETHYLENE GLYCOL 3350
     Indication: GASTROINTESTINAL DISORDER
     Dosage: UNK (1 FULL CAPFUL DOSE)
     Route: 048
  4. ALLOPURINOL. [Concomitant]
     Active Substance: ALLOPURINOL
  5. MIRALAX [Suspect]
     Active Substance: POLYETHYLENE GLYCOL 3350
     Indication: CONSTIPATION
  6. DILTIAZEM. [Concomitant]
     Active Substance: DILTIAZEM
  7. APIXABAN [Concomitant]
     Active Substance: APIXABAN

REACTIONS (2)
  - Incorrect drug administration duration [Unknown]
  - Product prescribing issue [Unknown]
